FAERS Safety Report 4704780-7 (Version None)
Quarter: 2005Q2

REPORT INFORMATION
  Report Type: 
  Country: None (occurrence: None)
  Receive Date: 20050630
  Receipt Date: 20050623
  Transmission Date: 20051028
  Serious: Yes (Death, Hospitalization)
  Sender: FDA-Public Use
  Company Number: 200511917GDS

PATIENT
  Age: 83 Year
  Sex: Female

DRUGS (15)
  1. ASPIRIN [Suspect]
     Indication: CORONARY ARTERY DISEASE
     Dosage: ORAL
     Route: 048
     Dates: start: 20050501
  2. ASPIRIN [Suspect]
     Indication: THROMBOLYSIS
     Dosage: ORAL
     Route: 048
     Dates: start: 20050501
  3. TENECTEPLASE [Suspect]
     Indication: CORONARY ARTERY DISEASE
     Dosage: QD, INTRAVENOUS
     Route: 042
     Dates: start: 20050501
  4. TENECTEPLASE [Suspect]
     Indication: THROMBOLYSIS
     Dosage: QD, INTRAVENOUS
     Route: 042
     Dates: start: 20050501
  5. PLAVIX [Suspect]
     Indication: CORONARY ARTERY DISEASE
     Dosage: 75 MG, TOTAL DAILY, ORAL
     Route: 048
     Dates: start: 20050501
  6. PLAVIX [Suspect]
     Indication: THROMBOLYSIS
     Dosage: 75 MG, TOTAL DAILY, ORAL
     Route: 048
     Dates: start: 20050501
  7. HEPARIN [Suspect]
     Indication: CORONARY ARTERY DISEASE
     Dates: start: 20050501
  8. HEPARIN [Suspect]
     Indication: THROMBOLYSIS
     Dates: start: 20050501
  9. ATACAND [Concomitant]
  10. PANTOPRAZOLE SODIUM [Concomitant]
  11. KCL-RETARD [Concomitant]
  12. ZYPREXA [Concomitant]
  13. TORSEMIDE [Concomitant]
  14. ALLOPURINOL [Concomitant]
  15. ALDACTONE [Concomitant]

REACTIONS (10)
  - ARRHYTHMIA [None]
  - ATRIOVENTRICULAR BLOCK [None]
  - CEREBRAL HAEMORRHAGE [None]
  - DRUG INTERACTION [None]
  - ELECTROCARDIOGRAM QRS COMPLEX SHORTENED [None]
  - GLASGOW COMA SCALE ABNORMAL [None]
  - INTRAVENTRICULAR HAEMORRHAGE [None]
  - LOSS OF CONSCIOUSNESS [None]
  - NEUROLOGICAL SYMPTOM [None]
  - SUPRAVENTRICULAR TACHYCARDIA [None]
